FAERS Safety Report 17818317 (Version 1)
Quarter: 2020Q2

REPORT INFORMATION
  Report Type: Spontaneous
  Country: US (occurrence: US)
  Receive Date: 20200522
  Receipt Date: 20200522
  Transmission Date: 20200714
  Serious: No
  Sender: FDA-Public Use
  Company Number: US-BAUSCH-BL-2020-014944

PATIENT
  Age: 58 Year
  Sex: Female

DRUGS (3)
  1. METRONIDAZOLE. [Suspect]
     Active Substance: METRONIDAZOLE
     Indication: PRODUCT USE IN UNAPPROVED INDICATION
  2. METRONIDAZOLE. [Suspect]
     Active Substance: METRONIDAZOLE
     Indication: IRRITABLE BOWEL SYNDROME
     Route: 065
     Dates: start: 201906, end: 201906
  3. CEPHALEXIN. [Suspect]
     Active Substance: CEPHALEXIN
     Indication: IRRITABLE BOWEL SYNDROME
     Route: 065
     Dates: start: 201906, end: 201906

REACTIONS (4)
  - Abdominal pain [Unknown]
  - Product use in unapproved indication [Unknown]
  - Nausea [Unknown]
  - Drug intolerance [Unknown]

NARRATIVE: CASE EVENT DATE: 201906
